FAERS Safety Report 10130147 (Version 1)
Quarter: 2014Q2

REPORT INFORMATION
  Report Type: Spontaneous
  Country: US (occurrence: US)
  Receive Date: 20140428
  Receipt Date: 20140428
  Transmission Date: 20141212
  Serious: No
  Sender: FDA-Public Use
  Company Number: US-PFIZER INC-2014113937

PATIENT
  Age: 66 Year
  Sex: Male
  Weight: 111.11 kg

DRUGS (5)
  1. LYRICA [Suspect]
     Indication: FIBROMYALGIA
     Dosage: 75 MG, 2X/DAY
     Route: 048
     Dates: start: 20140417
  2. LYRICA [Suspect]
     Indication: OSTEOARTHRITIS
  3. LIPITOR [Concomitant]
     Indication: BLOOD CHOLESTEROL INCREASED
     Dosage: 80 MG, DAILY
  4. FLOMAX [Concomitant]
     Dosage: UNK
  5. METOPROLOL [Concomitant]
     Dosage: UNK

REACTIONS (5)
  - Increased appetite [Unknown]
  - Weight increased [Unknown]
  - Dizziness [Unknown]
  - Constipation [Unknown]
  - Therapeutic response changed [Unknown]
